FAERS Safety Report 9492318 (Version 2)
Quarter: 2013Q3

REPORT INFORMATION
  Report Type: Spontaneous
  Country: DE (occurrence: DE)
  Receive Date: 20130830
  Receipt Date: 20130830
  Transmission Date: 20140515
  Serious: Yes (Life-Threatening, Hospitalization)
  Sender: FDA-Public Use
  Company Number: GXKR2013DE002746

PATIENT
  Sex: Female
  Weight: 62 kg

DRUGS (1)
  1. CIPRO 1A PHARMA [Suspect]
     Indication: CYSTITIS
     Dosage: UNK UKN, UNK
     Route: 048

REACTIONS (4)
  - Loss of consciousness [Unknown]
  - Depressed level of consciousness [Unknown]
  - Nightmare [Unknown]
  - Hallucination [Unknown]
